FAERS Safety Report 5858221-7 (Version None)
Quarter: 2008Q3

REPORT INFORMATION
  Report Type: 
  Country: None (occurrence: None)
  Receive Date: 20080826
  Receipt Date: 20080820
  Transmission Date: 20090109
  Serious: Yes (Death, Hospitalization)
  Sender: FDA-Public Use
  Company Number: A0733512A

PATIENT
  Age: 64 Year
  Sex: Male

DRUGS (8)
  1. AVANDIA [Suspect]
     Indication: DIABETES MELLITUS
     Dosage: 4MG PER DAY
     Route: 048
     Dates: start: 20011005, end: 20030324
  2. GLYBURIDE [Concomitant]
  3. LIPITOR [Concomitant]
  4. ALLOPURINOL [Concomitant]
  5. ATENOLOL AND CHLORTHALIDONE [Concomitant]
  6. AUGMENTIN '125' [Concomitant]
  7. NASONEX [Concomitant]
  8. COUGH SYRUP [Concomitant]

REACTIONS (4)
  - CARDIAC FAILURE CONGESTIVE [None]
  - CARDIOGENIC SHOCK [None]
  - MYOCARDIAL INFARCTION [None]
  - VENTRICLE RUPTURE [None]
